FAERS Safety Report 12923476 (Version 2)
Quarter: 2017Q3

REPORT INFORMATION
  Report Type: Spontaneous
  Country: US (occurrence: US)
  Receive Date: 20161109
  Receipt Date: 20170726
  Transmission Date: 20171127
  Serious: No
  Sender: FDA-Public Use
  Company Number: US-PFIZER INC-2016517332

PATIENT
  Age: 59 Year
  Sex: Female

DRUGS (1)
  1. SOLU-MEDROL [Suspect]
     Active Substance: METHYLPREDNISOLONE SODIUM SUCCINATE
     Dosage: UNK

REACTIONS (3)
  - Palpitations [Unknown]
  - Drug hypersensitivity [Unknown]
  - Tachycardia [Unknown]
